FAERS Safety Report 8815096 (Version 1)
Quarter: 2012Q4

REPORT INFORMATION
  Report Type: 
  Country: CN (occurrence: CN)
  Receive Date: 20120928
  Receipt Date: 20120928
  Transmission Date: 20130627
  Serious: Yes (Other)
  Sender: FDA-Public Use
  Company Number: CN-SANOFI-AVENTIS-2012SA070252

PATIENT
  Age: 50 Year
  Sex: Male
  Weight: 55 kg

DRUGS (2)
  1. STILNOX [Suspect]
     Indication: INSOMNIA
     Route: 048
     Dates: start: 20101006, end: 20101010
  2. STILNOX [Suspect]
     Indication: INSOMNIA
     Route: 048

REACTIONS (2)
  - Schizophreniform disorder [Recovered/Resolved]
  - Sleep disorder [Recovered/Resolved]
